FAERS Safety Report 6485443-7 (Version None)
Quarter: 2009Q4

REPORT INFORMATION
  Report Type: 
  Country: None (occurrence: None)
  Receive Date: 20091209
  Receipt Date: 20090623
  Transmission Date: 20100525
  Serious: No
  Sender: FDA-Public Use
  Company Number: US-AMGEN-KDL353030

PATIENT
  Sex: Male

DRUGS (1)
  1. ENBREL [Suspect]
     Indication: RHEUMATOID ARTHRITIS
     Route: 058

REACTIONS (4)
  - EXPIRED DRUG ADMINISTERED [None]
  - MUSCULAR WEAKNESS [None]
  - MYALGIA [None]
  - NODULE ON EXTREMITY [None]
